FAERS Safety Report 7235197-1 (Version None)
Quarter: 2011Q1

REPORT INFORMATION
  Report Type: 
  Country: None (occurrence: None)
  Receive Date: 20110120
  Receipt Date: 20110117
  Transmission Date: 20110831
  Serious: Yes (Death, Hospitalization)
  Sender: FDA-Public Use
  Company Number: NL-BRISTOL-MYERS SQUIBB COMPANY-15375561

PATIENT
  Age: 50 Year
  Sex: Female
  Weight: 54 kg

DRUGS (5)
  1. FLUOROURACIL [Suspect]
     Indication: HEAD AND NECK CANCER
     Dosage: RECENT DOSE:02NOV09.GIVEN OVER 5 DAYS. ACTUALLY DAILY DOSE:1400MG
     Route: 042
     Dates: start: 20090826, end: 20091101
  2. CETUXIMAB [Suspect]
     Indication: HEAD AND NECK CANCER
     Dosage: RECENT DOSE:29DEC09
     Route: 042
     Dates: start: 20090826, end: 20091229
  3. CISPLATIN [Suspect]
     Indication: HEAD AND NECK CANCER
     Dosage: RECENT DOSE:28OCT09
     Route: 042
     Dates: start: 20090826, end: 20091028
  4. TAXOTERE [Suspect]
     Indication: HEAD AND NECK CANCER
     Dosage: RECENT DOSE:28OCT09
     Route: 042
     Dates: start: 20090826, end: 20091028
  5. CARBOPLATIN [Suspect]
     Indication: HEAD AND NECK CANCER
     Dosage: RECENT DOSE:12JAN10
     Route: 042
     Dates: start: 20091201, end: 20100112

REACTIONS (1)
  - PHARYNGEAL HAEMORRHAGE [None]
